FAERS Safety Report 10169214 (Version 1)
Quarter: 2014Q2

REPORT INFORMATION
  Report Type: Spontaneous
  Country: US (occurrence: None)
  Receive Date: 20140512
  Receipt Date: 20140512
  Transmission Date: 20141212
  Serious: Yes (Hospitalization)
  Sender: FDA-Public Use
  Company Number: None

PATIENT
  Age: 61 Year
  Sex: Male
  Weight: 121.4 kg

DRUGS (1)
  1. ALBUTEROL/IPRATROPIUM [Suspect]
     Indication: BRONCHITIS
     Route: 055
     Dates: start: 20140325, end: 20140327

REACTIONS (5)
  - Chest pain [None]
  - Electrocardiogram ST segment elevation [None]
  - Tachycardia [None]
  - Palpitations [None]
  - Angina pectoris [None]
